FAERS Safety Report 7465774 (Version 22)
Quarter: 2014Q1

REPORT INFORMATION
  Report Type: Spontaneous
  Country: US (occurrence: US)
  Receive Date: 20100712
  Receipt Date: 20140128
  Transmission Date: 20141002
  Serious: Yes (Hospitalization, Other)
  Sender: FDA-Public Use
  Company Number: PHEH2010US03493

PATIENT
  Sex: Female

DRUGS (12)
  1. ZOMETA [Suspect]
     Indication: PLASMA CELL MYELOMA
     Dosage: 4 MG, QMO
     Route: 042
     Dates: start: 2002, end: 2005
  2. IBUPROFEN [Concomitant]
  3. COZAAR [Concomitant]
  4. HYDROCHLOROTHIAZIDE [Concomitant]
  5. ATENOLOL [Concomitant]
  6. TYLENOL [Concomitant]
  7. MELPHALAN [Concomitant]
  8. PREDNISONE [Concomitant]
  9. AMOXIL [Concomitant]
     Dosage: 500 MG, TID
     Route: 048
  10. LISINOPRIL [Concomitant]
     Dosage: 40 MG, QD
     Route: 048
  11. ASPIRIN [Concomitant]
     Dosage: 325 MG, QD
     Route: 048
  12. ALPRAZOLAM [Concomitant]

REACTIONS (132)
  - Nausea [Unknown]
  - Vomiting [Unknown]
  - Osteonecrosis of jaw [Unknown]
  - Disability [Unknown]
  - Anxiety [Unknown]
  - Pain [Unknown]
  - Injury [Unknown]
  - Hypoaesthesia [Unknown]
  - Osteitis [Unknown]
  - Exposed bone in jaw [Unknown]
  - Anhedonia [Unknown]
  - Swelling [Unknown]
  - Tooth abscess [Unknown]
  - Overgrowth bacterial [Unknown]
  - Meningioma [Unknown]
  - Atrophic vulvovaginitis [Unknown]
  - Osteoarthritis [Unknown]
  - Urinary incontinence [Unknown]
  - Cerebral calcification [Unknown]
  - Fall [Unknown]
  - Osteoporosis [Unknown]
  - Spinal column stenosis [Unknown]
  - Amnesia [Unknown]
  - Myocardial infarction [Unknown]
  - Radiculopathy [Unknown]
  - Cataract cortical [Unknown]
  - Macular degeneration [Unknown]
  - Gastrooesophageal reflux disease [Unknown]
  - Spinal osteoarthritis [Unknown]
  - Spondylolisthesis [Unknown]
  - Intervertebral disc protrusion [Unknown]
  - Deafness [Unknown]
  - Tooth fracture [Unknown]
  - Headache [Unknown]
  - Lacunar infarction [Unknown]
  - Primary sequestrum [Unknown]
  - Obesity [Unknown]
  - Cervical myelopathy [Unknown]
  - Klippel-Feil syndrome [Unknown]
  - Post laminectomy syndrome [Unknown]
  - Vertigo [Unknown]
  - Arthralgia [Unknown]
  - Asthenia [Unknown]
  - Genital discomfort [Unknown]
  - Hyperkalaemia [Unknown]
  - Paraesthesia [Unknown]
  - Oedema peripheral [Unknown]
  - Back pain [Unknown]
  - Musculoskeletal pain [Unknown]
  - Gait disturbance [Unknown]
  - Encephalopathy [Unknown]
  - Peptic ulcer [Unknown]
  - Mixed incontinence [Unknown]
  - Chest pain [Unknown]
  - Cerebral artery thrombosis [Unknown]
  - Bundle branch block right [Unknown]
  - Transient ischaemic attack [Unknown]
  - Cerebellar atrophy [Unknown]
  - Cerebral atrophy [Unknown]
  - Aortic valve incompetence [Unknown]
  - Normochromic normocytic anaemia [Unknown]
  - Osteonecrosis [Unknown]
  - Vision blurred [Unknown]
  - Palpitations [Unknown]
  - Hyperglycaemia [Unknown]
  - Arthropathy [Unknown]
  - Sinus disorder [Unknown]
  - Hepatic cyst [Unknown]
  - Renal cyst [Unknown]
  - Cerebral infarction [Unknown]
  - Clumsiness [Unknown]
  - Thyroid disorder [Unknown]
  - Aortic dilatation [Unknown]
  - Spinal disorder [Unknown]
  - Jaw disorder [Unknown]
  - Hemiparesis [Unknown]
  - Aortic calcification [Unknown]
  - Hyperparathyroidism secondary [Unknown]
  - Drug hypersensitivity [Unknown]
  - Lichen sclerosus [Unknown]
  - Genital labial adhesions [Unknown]
  - Effusion [Unknown]
  - Dental caries [Unknown]
  - Tooth loss [Unknown]
  - Bronchitis [Unknown]
  - Dementia [Unknown]
  - Hallucination [Unknown]
  - Abdominal pain [Unknown]
  - Neck pain [Unknown]
  - Facial pain [Unknown]
  - Urinary tract infection [Unknown]
  - Cerebrovascular disorder [Unknown]
  - Confusional state [Unknown]
  - Mental status changes [Unknown]
  - Incisional hernia [Unknown]
  - Dyspnoea [Unknown]
  - Exostosis [Unknown]
  - Muscle spasms [Unknown]
  - Nodal osteoarthritis [Unknown]
  - Bowen^s disease [Unknown]
  - Second primary malignancy [Unknown]
  - Pruritus genital [Unknown]
  - Muscular weakness [Unknown]
  - Malaise [Unknown]
  - Fatigue [Unknown]
  - Neuropathy peripheral [Unknown]
  - Electrocardiogram T wave abnormal [Unknown]
  - Cerebrovascular accident [Unknown]
  - Haemorrhage intracranial [Unknown]
  - Myopia [Unknown]
  - Astigmatism [Unknown]
  - Presbyopia [Unknown]
  - Sensation of foreign body [Unknown]
  - Arthritis [Unknown]
  - Hyponatraemia [Unknown]
  - Cataract nuclear [Unknown]
  - Femur fracture [Unknown]
  - Paranoia [Unknown]
  - Cellulitis [Unknown]
  - Arteriosclerosis coronary artery [Unknown]
  - Pleural effusion [Unknown]
  - Atelectasis [Unknown]
  - Lung infiltration [Unknown]
  - Anaemia [Unknown]
  - Aortic disorder [Unknown]
  - Arteriosclerosis [Unknown]
  - Vascular calcification [Unknown]
  - Pancreatic atrophy [Unknown]
  - Scoliosis [Unknown]
  - Delirium [Unknown]
  - Tachycardia [Unknown]
  - Chest discomfort [Unknown]
